FAERS Safety Report 23130781 (Version 1)
Quarter: 2023Q4

REPORT INFORMATION
  Report Type: Spontaneous
  Country: US (occurrence: None)
  Receive Date: 20231030
  Receipt Date: 20231030
  Transmission Date: 20240109
  Serious: Yes (Hospitalization)
  Sender: FDA-Public Use
  Company Number: None

PATIENT
  Age: 61 Year
  Sex: Male
  Weight: 91.2 kg

DRUGS (1)
  1. YESCARTA [Suspect]
     Active Substance: AXICABTAGENE CILOLEUCEL
     Indication: Diffuse large B-cell lymphoma
     Dosage: FREQUENCY : ONCE;?
     Route: 042
     Dates: start: 20230919, end: 20230919

REACTIONS (6)
  - Lymphocyte adoptive therapy [None]
  - Cytokine release syndrome [None]
  - Cytopenia [None]
  - Febrile neutropenia [None]
  - Hyperlipidaemia [None]
  - Hypertension [None]

NARRATIVE: CASE EVENT DATE: 20230921
